FAERS Safety Report 9588037 (Version 1)
Quarter: 2013Q4

REPORT INFORMATION
  Report Type: Spontaneous
  Country: US (occurrence: US)
  Receive Date: 20131003
  Receipt Date: 20131003
  Transmission Date: 20140711
  Serious: No
  Sender: FDA-Public Use
  Company Number: US-AMGEN-USASP2012068073

PATIENT
  Age: 32 Year
  Sex: Female
  Weight: 99.77 kg

DRUGS (9)
  1. ENBREL [Suspect]
     Indication: PSORIASIS
     Dosage: 50 MG, 2 TIMES/WK
     Route: 058
  2. ZOLOFT [Concomitant]
     Dosage: 25 MG, UNK
  3. ABILIFY [Concomitant]
     Dosage: 10 MG, UNK
  4. SINGULAIR [Concomitant]
     Dosage: 10 MG, UNK
  5. ZYRTEC ALLERGY [Concomitant]
     Dosage: 10 MG, UNK
  6. AMLODIPINE [Concomitant]
     Dosage: 10 MG, UNK
  7. INDERAL [Concomitant]
     Dosage: 10 MG, UNK
  8. MIRENA [Concomitant]
     Dosage: IUD SYSTEM
  9. MAXALT                             /01406501/ [Concomitant]
     Dosage: 5 MG, UNK

REACTIONS (1)
  - Condition aggravated [Unknown]
